FAERS Safety Report 10697472 (Version 1)
Quarter: 2015Q1

REPORT INFORMATION
  Report Type: Spontaneous
  Country: US (occurrence: None)
  Receive Date: 20150107
  Receipt Date: 20150107
  Transmission Date: 20150721
  Serious: Yes (Other)
  Sender: FDA-Public Use
  Company Number: None

PATIENT
  Age: 74 Year
  Sex: Female

DRUGS (1)
  1. CAPECITABINE. [Suspect]
     Active Substance: CAPECITABINE
     Indication: BREAST CANCER
     Dates: start: 20141128

REACTIONS (3)
  - Insomnia [None]
  - Palmar-plantar erythrodysaesthesia syndrome [None]
  - Nausea [None]

NARRATIVE: CASE EVENT DATE: 20150106
